FAERS Safety Report 15061333 (Version 1)
Quarter: 2018Q2

REPORT INFORMATION
  Report Type: Spontaneous
  Country: TR (occurrence: TR)
  Receive Date: 20180625
  Receipt Date: 20180625
  Transmission Date: 20180711
  Serious: Yes (Hospitalization)
  Sender: FDA-Public Use
  Company Number: TR-MYLANLABS-2018M1044256

PATIENT
  Age: 63 Year
  Sex: Male

DRUGS (3)
  1. CARBAMAZEPINE. [Suspect]
     Active Substance: CARBAMAZEPINE
     Indication: GENERALISED TONIC-CLONIC SEIZURE
     Dosage: 400 MG, QD
     Route: 065
  2. CARBAMAZEPINE. [Suspect]
     Active Substance: CARBAMAZEPINE
     Route: 065
  3. BARBEXACLONE [Concomitant]
     Active Substance: BARBEXACLONE
     Indication: GENERALISED TONIC-CLONIC SEIZURE
     Route: 065

REACTIONS (4)
  - Eyelid myoclonus [Recovered/Resolved]
  - Generalised tonic-clonic seizure [Recovered/Resolved]
  - Petit mal epilepsy [Recovered/Resolved]
  - Condition aggravated [Recovered/Resolved]
